FAERS Safety Report 5327432-1 (Version None)
Quarter: 2007Q2

REPORT INFORMATION
  Report Type: 
  Country: None (occurrence: None)
  Receive Date: 20070517
  Receipt Date: 20070509
  Transmission Date: 20071010
  Serious: Yes (Hospitalization)
  Sender: FDA-Public Use
  Company Number: NL-JNJFOC-20060601996

PATIENT
  Sex: Female
  Weight: 40 kg

DRUGS (3)
  1. INFLIXIMAB [Suspect]
     Indication: CROHN'S DISEASE
     Dosage: QUERY RESPONSE PER VERSION ONE:  NO DRUG GIVEN.
     Route: 042
  2. METHOTREXATE [Concomitant]
     Indication: CROHN'S DISEASE
     Route: 065
  3. FOLIC ACID [Concomitant]
     Route: 065

REACTIONS (1)
  - CYTOMEGALOVIRUS INFECTION [None]
